FAERS Safety Report 19770856 (Version 2)
Quarter: 2021Q3

REPORT INFORMATION
  Report Type: Spontaneous
  Country: ES (occurrence: ES)
  Receive Date: 20210831
  Receipt Date: 20210831
  Transmission Date: 20211014
  Serious: Yes (Life-Threatening, Hospitalization)
  Sender: FDA-Public Use
  Company Number: ES-ASTRAZENECA-2021A702027

PATIENT
  Age: 50 Year
  Sex: Female

DRUGS (6)
  1. TRILEPTAL [Suspect]
     Active Substance: OXCARBAZEPINE
     Dosage: UNKNOWN
     Route: 048
     Dates: start: 2006
  2. SEROQUEL [Suspect]
     Active Substance: QUETIAPINE FUMARATE
     Route: 048
     Dates: start: 2012
  3. COMIRNATY [Suspect]
     Active Substance: TOZINAMERAN
     Indication: COVID-19 IMMUNISATION
     Dosage: 2ND DOSE
     Route: 030
     Dates: start: 20210124, end: 20210124
  4. ZYPREXA [Suspect]
     Active Substance: OLANZAPINE
     Dosage: UNKNOWN
     Route: 048
     Dates: start: 2006
  5. COMIRNATY [Suspect]
     Active Substance: TOZINAMERAN
     Indication: COVID-19 IMMUNISATION
     Dosage: 1ST DOSE
     Route: 030
     Dates: start: 20210103, end: 20210103
  6. RIVOTRIL [Suspect]
     Active Substance: CLONAZEPAM
     Route: 048
     Dates: start: 2012

REACTIONS (3)
  - Seizure [Recovered/Resolved]
  - Drug ineffective [Not Recovered/Not Resolved]
  - COVID-19 pneumonia [Not Recovered/Not Resolved]

NARRATIVE: CASE EVENT DATE: 20210805
